FAERS Safety Report 24693356 (Version 1)
Quarter: 2024Q4

REPORT INFORMATION
  Report Type: Report from Study
  Country: GB (occurrence: GB)
  Receive Date: 20241203
  Receipt Date: 20241203
  Transmission Date: 20250115
  Serious: Yes (Other)
  Sender: ABBVIE
  Company Number: GB-ABBVIE-6027733

PATIENT
  Sex: Male

DRUGS (5)
  1. CARBIDOPA\LEVODOPA [Suspect]
     Active Substance: CARBIDOPA\LEVODOPA
     Indication: Parkinson^s disease
     Dosage: MD:13 CR:6.2 ED:2.0
     Route: 050
  2. CARBIDOPA\LEVODOPA [Suspect]
     Active Substance: CARBIDOPA\LEVODOPA
  3. CARBIDOPA\LEVODOPA [Concomitant]
     Active Substance: CARBIDOPA\LEVODOPA
     Indication: Parkinson^s disease
     Dosage: 25/100MILLIGRAMS TWICE
     Route: 048
  4. SINEMET [Concomitant]
     Active Substance: CARBIDOPA\LEVODOPA
     Indication: Parkinson^s disease
     Dosage: 25/100MILLIGRAMS ONCE
     Route: 048
  5. PRAMIPEXOLE [Concomitant]
     Active Substance: PRAMIPEXOLE\PRAMIPEXOLE DIHYDROCHLORIDE
     Indication: Parkinson^s disease
     Route: 048

REACTIONS (16)
  - Embedded device [Unknown]
  - Stoma site erythema [Unknown]
  - Muscle rigidity [Unknown]
  - Abnormal dreams [Unknown]
  - Dystonia [Unknown]
  - Freezing phenomenon [Unknown]
  - Fall [Unknown]
  - Dyskinesia [Unknown]
  - Hallucination, visual [Unknown]
  - Depressed mood [Unknown]
  - Stoma site pain [Unknown]
  - Musculoskeletal pain [Unknown]
  - Memory impairment [Unknown]
  - Device issue [Not Recovered/Not Resolved]
  - Device power source issue [Not Recovered/Not Resolved]
  - Stoma site discharge [Unknown]
